FAERS Safety Report 25732147 (Version 1)
Quarter: 2025Q3

REPORT INFORMATION
  Report Type: Spontaneous
  Country: US (occurrence: None)
  Receive Date: 20250827
  Receipt Date: 20250827
  Transmission Date: 20251020
  Serious: Yes (Death)
  Sender: FDA-CTU
  Company Number: None

PATIENT
  Sex: Female

DRUGS (7)
  1. RINVOQ [Suspect]
     Active Substance: UPADACITINIB
     Indication: Rheumatoid arthritis
     Dosage: 15 MG DAIL ORAL ?
     Route: 048
     Dates: start: 20240123, end: 20250827
  2. GABAPENTIN [Concomitant]
     Active Substance: GABAPENTIN
  3. LOSARTAN [Concomitant]
     Active Substance: LOSARTAN
  4. METHOTREXATE [Concomitant]
     Active Substance: METHOTREXATE
  5. METOPROLOL SUCCINATE [Concomitant]
     Active Substance: METOPROLOL SUCCINATE
  6. PREDNISONE [Concomitant]
     Active Substance: PREDNISONE
  7. PROLIA [Concomitant]
     Active Substance: DENOSUMAB

REACTIONS (1)
  - Death [None]
